FAERS Safety Report 6819556-4 (Version None)
Quarter: 2010Q3

REPORT INFORMATION
  Report Type: 
  Country: None (occurrence: None)
  Receive Date: 20100707
  Receipt Date: 20070601
  Transmission Date: 20110219
  Serious: Yes (Other)
  Sender: FDA-Public Use
  Company Number: AU-SANOFI-AVENTIS-D01200703654

PATIENT
  Age: 77 Year
  Sex: Female
  Weight: 54 kg

DRUGS (5)
  1. BLINDED THERAPY [Suspect]
     Dates: start: 20070519
  2. ENOXAPARIN SODIUM [Suspect]
     Dosage: UNIT DOSE: 1 MG/KG
     Route: 058
  3. NORVASC [Concomitant]
     Route: 065
     Dates: start: 20060101
  4. FISH OIL [Concomitant]
     Route: 065
  5. GLUCOSAMINE [Concomitant]
     Route: 065

REACTIONS (1)
  - ACCIDENTAL OVERDOSE [None]
